FAERS Safety Report 9127927 (Version 1)
Quarter: 2013Q1

REPORT INFORMATION
  Report Type: Spontaneous
  Country: US (occurrence: US)
  Receive Date: 20130228
  Receipt Date: 20130228
  Transmission Date: 20140127
  Serious: No
  Sender: FDA-Public Use
  Company Number: US-BRISTOL-MYERS SQUIBB COMPANY-17244781

PATIENT
  Age: 4 Decade
  Sex: 0

DRUGS (2)
  1. KOMBOGLYZE [Suspect]
     Indication: TYPE 2 DIABETES MELLITUS
     Dosage: 1 DF:2.5/1000 UNITS NOS?THEN DOSE INCREASED TO 1DF:5/1000 UNITS NOS?PARENTAL INJ SOLN,100IU/ML
     Route: 058
  2. LANTUS [Suspect]
     Indication: TYPE 2 DIABETES MELLITUS
     Dosage: 12 UNITS IN MORNING AND 38 UNITS IN NIGHT
     Route: 048

REACTIONS (1)
  - Blood glucose increased [Not Recovered/Not Resolved]
